FAERS Safety Report 6582625-0 (Version None)
Quarter: 2010Q1

REPORT INFORMATION
  Report Type: 
  Country: None (occurrence: None)
  Receive Date: 20100203
  Receipt Date: 20100121
  Transmission Date: 20100710
  Serious: Yes (Other)
  Sender: FDA-Public Use
  Company Number: 005145

PATIENT
  Age: 87 Year
  Sex: Female

DRUGS (1)
  1. MACUGEN [Suspect]
     Dosage: INTRAOCULAR
     Route: 031
     Dates: start: 20090705

REACTIONS (1)
  - ENDOPHTHALMITIS [None]
